FAERS Safety Report 4661296-4 (Version None)
Quarter: 2005Q2

REPORT INFORMATION
  Report Type: 
  Country: None (occurrence: None)
  Receive Date: 20050511
  Receipt Date: 20050504
  Transmission Date: 20051028
  Serious: Yes (Death, Other)
  Sender: FDA-Public Use
  Company Number: 200511233GDS

PATIENT
  Age: 75 Year
  Sex: Male
  Weight: 68 kg

DRUGS (3)
  1. AVELOX [Suspect]
     Indication: RESPIRATORY TRACT INFECTION
     Dosage: 400 MG, TOTAL DAILY, INTRAVENOUS
     Route: 042
  2. AMIODARONE HYDROCHLORIDE [Concomitant]
  3. PROPOFOL [Concomitant]

REACTIONS (9)
  - AGITATION [None]
  - COAGULATION TEST ABNORMAL [None]
  - HALLUCINATION [None]
  - HEPATIC FAILURE [None]
  - HEPATIC NECROSIS [None]
  - HEPATITIS [None]
  - HEPATOCELLULAR DAMAGE [None]
  - LIVER DISORDER [None]
  - RHABDOMYOLYSIS [None]
